FAERS Safety Report 12789130 (Version 1)
Quarter: 2016Q3

REPORT INFORMATION
  Report Type: Spontaneous
  Country: US (occurrence: US)
  Receive Date: 20160928
  Receipt Date: 20160928
  Transmission Date: 20161109
  Serious: No
  Sender: FDA-Public Use
  Company Number: US-BAYER-2016-188019

PATIENT
  Age: 87 Year
  Sex: Male
  Weight: 71.66 kg

DRUGS (1)
  1. MIRALAX [Suspect]
     Active Substance: POLYETHYLENE GLYCOL 3350
     Indication: GASTROINTESTINAL DISORDER
     Dosage: 1/2 DOSE
     Route: 048

REACTIONS (2)
  - Diarrhoea [Recovered/Resolved]
  - Product use issue [None]
